FAERS Safety Report 8021343-9 (Version None)
Quarter: 2011Q4

REPORT INFORMATION
  Report Type: 
  Country: None (occurrence: None)
  Receive Date: 20111229
  Receipt Date: 20111215
  Transmission Date: 20120403
  Serious: Yes (Hospitalization)
  Sender: FDA-Public Use
  Company Number: 1000025827

PATIENT
  Age: 59 Year
  Sex: Female
  Weight: 70.5 kg

DRUGS (6)
  1. METHADONE (METHADONE HYDROCHLORIDE) (METHADONE HYDROCHLORIDE) [Concomitant]
  2. MILNACIPRAN (MILNACIPRAN HYDROCHLORIDE) (TABLETS) [Suspect]
     Dosage: ORAL
     Route: 048
  3. CARISOPRODOL [Concomitant]
  4. LEVOTHYROXINE SODIUM [Concomitant]
  5. PAROXETINE (PAROXETINE HYDROCHLORIDE0 (PAROXETINE HYDROCHLORIDE) [Concomitant]
  6. METHYLPHENIDATE (METHYLPHENIDATE HYDROCHLORIDE) (METHYLPHENIDATE HYDRO [Concomitant]

REACTIONS (17)
  - INTENTIONAL OVERDOSE [None]
  - HYPOPNOEA [None]
  - SINUS BRADYCARDIA [None]
  - UNRESPONSIVE TO STIMULI [None]
  - AREFLEXIA [None]
  - BLOOD PRESSURE INCREASED [None]
  - ELECTROCARDIOGRAM T WAVE AMPLITUDE DECREASED [None]
  - SUICIDE ATTEMPT [None]
  - DEPRESSED LEVEL OF CONSCIOUSNESS [None]
  - DIASTOLIC DYSFUNCTION [None]
  - HYPOTENSION [None]
  - SINUS ARRHYTHMIA [None]
  - ELECTROCARDIOGRAM QT PROLONGED [None]
  - DRUG SCREEN POSITIVE [None]
  - STRESS CARDIOMYOPATHY [None]
  - SEROTONIN SYNDROME [None]
  - TOXICITY TO VARIOUS AGENTS [None]
